FAERS Safety Report 9271575 (Version 2)
Quarter: 2013Q2

REPORT INFORMATION
  Report Type: Spontaneous
  Country: US (occurrence: US)
  Receive Date: 20130506
  Receipt Date: 20130509
  Transmission Date: 20140414
  Serious: Yes (Hospitalization)
  Sender: FDA-Public Use
  Company Number: US-PFIZER INC-2013137989

PATIENT
  Age: 93 Year
  Sex: Female

DRUGS (4)
  1. PROTONIX [Suspect]
     Indication: GASTRIC ULCER
     Dosage: 40 MG, 2X/DAY
     Route: 048
  2. EFFEXOR XR [Suspect]
     Indication: DEPRESSION
     Dosage: ONE 75MG CAPSULE IN MORNING AND TWO 75MG CAPSULES IN NIGHT
     Route: 048
     Dates: start: 2000
  3. BUMEX [Concomitant]
     Dosage: UNK
  4. METOLAZONE [Concomitant]
     Dosage: UNK

REACTIONS (1)
  - Hip fracture [Recovered/Resolved]
